FAERS Safety Report 5055395-5 (Version None)
Quarter: 2006Q3

REPORT INFORMATION
  Report Type: 
  Country: None (occurrence: None)
  Receive Date: 20060719
  Receipt Date: 20060124
  Transmission Date: 20061208
  Serious: Yes (Hospitalization, Disabling)
  Sender: FDA-Public Use
  Company Number: CA-BOEHRINGER INGELHEIM PHARMACEUTICALS, INC.-2006-CN-00065CN

PATIENT
  Sex: Male
  Weight: 95.25 kg

DRUGS (6)
  1. MICARDIS HCT [Suspect]
     Route: 048
     Dates: start: 20050526, end: 20051215
  2. RAMIPRIL [Concomitant]
     Route: 048
     Dates: start: 19990101
  3. LIPITOR [Concomitant]
     Route: 048
     Dates: start: 19990101
  4. NORVASK [Concomitant]
     Route: 048
     Dates: start: 19990101
  5. ASPIRIN [Concomitant]
     Route: 048
     Dates: start: 19990101
  6. PLAVIX [Concomitant]
     Route: 048
     Dates: start: 20051205

REACTIONS (1)
  - CEREBROVASCULAR ACCIDENT [None]
